FAERS Safety Report 18223714 (Version 2)
Quarter: 2020Q3

REPORT INFORMATION
  Report Type: Spontaneous
  Country: US (occurrence: US)
  Receive Date: 20200902
  Receipt Date: 20200915
  Transmission Date: 20201103
  Serious: Yes (Other)
  Sender: FDA-Public Use
  Company Number: US-MYLANLABS-2020M1075087

PATIENT
  Sex: Male
  Weight: 100 kg

DRUGS (1)
  1. TRAMADOL. [Suspect]
     Active Substance: TRAMADOL
     Indication: FRACTURE PAIN
     Dosage: UNK

REACTIONS (2)
  - Overdose [Unknown]
  - Dependence [Unknown]
